FAERS Safety Report 8791293 (Version 1)
Quarter: 2012Q4

REPORT INFORMATION
  Report Type: 
  Country: US (occurrence: None)
  Receive Date: 20120914
  Receipt Date: 20120914
  Transmission Date: 20130627
  Serious: Yes (Hospitalization)
  Sender: FDA-Public Use
  Company Number: None

PATIENT
  Sex: Male
  Weight: 74.9 kg

DRUGS (3)
  1. PEG/L-ASPARAGINASE [Suspect]
  2. VINCRISTINE SULFATE [Suspect]
  3. METHOTREXATE [Suspect]

REACTIONS (2)
  - Blood triglycerides increased [None]
  - Nausea [None]
